FAERS Safety Report 25203015 (Version 1)
Quarter: 2025Q2

REPORT INFORMATION
  Report Type: Spontaneous
  Country: JP (occurrence: JP)
  Receive Date: 20250416
  Receipt Date: 20250416
  Transmission Date: 20250717
  Serious: Yes (Other)
  Sender: TEVA
  Company Number: JP-TEVA-VS-3322364

PATIENT

DRUGS (2)
  1. TRISENOX [Suspect]
     Active Substance: ARSENIC TRIOXIDE
     Indication: Product used for unknown indication
     Route: 042
  2. VESANOID [Suspect]
     Active Substance: TRETINOIN
     Indication: Product used for unknown indication
     Route: 048

REACTIONS (1)
  - Cytopenia [Unknown]
